FAERS Safety Report 8740573 (Version 5)
Quarter: 2014Q3

REPORT INFORMATION
  Report Type: Spontaneous
  Country: US (occurrence: US)
  Receive Date: 20120823
  Receipt Date: 20140829
  Transmission Date: 20150326
  Serious: Yes (Hospitalization, Disabling, Other)
  Sender: FDA-Public Use
  Company Number: US-009507513-2011SP046042

PATIENT
  Sex: Female
  Weight: 133.79 kg

DRUGS (4)
  1. ALBUTEROL. [Concomitant]
     Active Substance: ALBUTEROL
     Indication: PRODUCT USED FOR UNKNOWN INDICATION
     Dosage: UNK
     Dates: start: 2005
  2. NUVARING [Suspect]
     Active Substance: ETHINYL ESTRADIOL\ETONOGESTREL
     Indication: MENSTRUAL DISORDER
     Dosage: UNK
     Route: 067
     Dates: start: 200906, end: 200909
  3. FLUTICASONE PROPIONATE (+) SALMETEROL XINAFOATE [Concomitant]
     Active Substance: FLUTICASONE PROPIONATE\SALMETEROL XINAFOATE
     Indication: PRODUCT USED FOR UNKNOWN INDICATION
     Dosage: UNK
     Dates: start: 2005
  4. NUVARING [Suspect]
     Active Substance: ETHINYL ESTRADIOL\ETONOGESTREL
     Indication: CONTRACEPTION

REACTIONS (21)
  - Respiratory distress [Unknown]
  - Chest pain [Not Recovered/Not Resolved]
  - Off label use [Unknown]
  - Pulmonary hypertension [Unknown]
  - Nodule [Unknown]
  - Chest pain [Unknown]
  - Rhinitis allergic [Unknown]
  - Eczema [Unknown]
  - Pulmonary embolism [Recovered/Resolved]
  - Sleep apnoea syndrome [Unknown]
  - Status asthmaticus [Not Recovered/Not Resolved]
  - Bronchitis [Unknown]
  - Deep vein thrombosis [Unknown]
  - Respiratory distress [Unknown]
  - Sinus bradycardia [Unknown]
  - Gastrooesophageal reflux disease [Not Recovered/Not Resolved]
  - Left ventricular dysfunction [Unknown]
  - Hypertension [Unknown]
  - Respiratory distress [Unknown]
  - Chest pain [Unknown]
  - Diabetes mellitus [Not Recovered/Not Resolved]

NARRATIVE: CASE EVENT DATE: 20090925
